FAERS Safety Report 7861220-7 (Version None)
Quarter: 2011Q4

REPORT INFORMATION
  Report Type: 
  Country: None (occurrence: None)
  Receive Date: 20111027
  Receipt Date: 20111018
  Transmission Date: 20120403
  Serious: Yes (Other)
  Sender: FDA-Public Use
  Company Number: US-JNJFOC-20110912063

PATIENT
  Sex: Male

DRUGS (10)
  1. AMLODIPINE [Concomitant]
     Indication: HYPERTENSION
  2. ZYRTEC [Concomitant]
     Indication: MULTIPLE ALLERGIES
  3. STELARA [Suspect]
     Indication: PSORIASIS
     Route: 058
     Dates: start: 20101011
  4. TRIAMTERENE [Concomitant]
     Indication: HYPERTENSION
  5. STELARA [Suspect]
     Route: 058
     Dates: start: 20110207
  6. STELARA [Suspect]
     Route: 058
     Dates: start: 20110427
  7. INSULIN [Concomitant]
     Indication: DIABETES MELLITUS
  8. STELARA [Suspect]
     Route: 058
     Dates: start: 20110711
  9. STELARA [Suspect]
     Route: 058
     Dates: start: 20101108
  10. STELARA [Suspect]
     Route: 058
     Dates: start: 20111010

REACTIONS (1)
  - HEPATITIS C [None]
